FAERS Safety Report 9215284 (Version 3)
Quarter: 2013Q3

REPORT INFORMATION
  Report Type: Spontaneous
  Country: US (occurrence: US)
  Receive Date: 20130405
  Receipt Date: 20130710
  Transmission Date: 20140515
  Serious: Yes (Death, Hospitalization)
  Sender: FDA-Public Use
  Company Number: US-GLAXOSMITHKLINE-A1018793A

PATIENT
  Age: 52 Year
  Sex: Female
  Weight: 95.5 kg

DRUGS (13)
  1. BENLYSTA [Suspect]
     Indication: SYSTEMIC LUPUS ERYTHEMATOSUS
     Dosage: 800MG MONTHLY
     Route: 042
     Dates: start: 20111208, end: 20121109
  2. HYDROXYCHLOROQUINE [Concomitant]
  3. CELECOXIB [Concomitant]
  4. PREDNISONE [Concomitant]
  5. ESCITALOPRAM [Concomitant]
  6. HYDROCODONE [Concomitant]
  7. HYDROXYZINE [Concomitant]
  8. RIZATRIPTAN [Concomitant]
  9. TOPIRAMATE [Concomitant]
  10. VENLAFAXINE [Concomitant]
  11. ZOLPIDEM [Concomitant]
  12. ZETIA [Concomitant]
  13. QUINACRINE HYDROCHLORIDE [Concomitant]

REACTIONS (6)
  - Pneumonia [Fatal]
  - Local swelling [Unknown]
  - Acute respiratory failure [Unknown]
  - Blood culture positive [Unknown]
  - Influenza [Unknown]
  - Sepsis [Fatal]
